FAERS Safety Report 23168024 (Version 2)
Quarter: 2023Q4

REPORT INFORMATION
  Report Type: Spontaneous
  Country: US (occurrence: US)
  Receive Date: 20231109
  Receipt Date: 20231218
  Transmission Date: 20240109
  Serious: Yes (Hospitalization, Other)
  Sender: FDA-Public Use
  Company Number: US-BAYER-2023A149844

PATIENT
  Age: 27 Year
  Sex: Female
  Weight: 66.213 kg

DRUGS (22)
  1. XARELTO [Suspect]
     Active Substance: RIVAROXABAN
     Indication: Product used for unknown indication
     Route: 048
  2. ADEMPAS [Suspect]
     Active Substance: RIOCIGUAT
     Indication: Pulmonary arterial hypertension
     Dosage: 0.5 MG, TID
     Route: 048
     Dates: start: 20230619
  3. ADEMPAS [Suspect]
     Active Substance: RIOCIGUAT
     Indication: Pulmonary arterial hypertension
     Dosage: 0.5 MG, TID
     Route: 048
  4. ADEMPAS [Suspect]
     Active Substance: RIOCIGUAT
     Indication: Pulmonary arterial hypertension
  5. AMBRISENTAN [Concomitant]
     Active Substance: AMBRISENTAN
  6. SODIUM CHLORIDE [Concomitant]
     Active Substance: SODIUM CHLORIDE
  7. SERTRALINE HYDROCHLORIDE [Concomitant]
     Active Substance: SERTRALINE HYDROCHLORIDE
  8. OMEPRAZOLE [Concomitant]
     Active Substance: OMEPRAZOLE
  9. MIDOL [ACETYLSALICYLIC ACID] [Concomitant]
  10. ACETAMINOPHEN [Concomitant]
     Active Substance: ACETAMINOPHEN
  11. PRILOSEC [Concomitant]
     Active Substance: OMEPRAZOLE MAGNESIUM
  12. FAMOTIDINE [Concomitant]
     Active Substance: FAMOTIDINE
  13. JANTOVEN [Concomitant]
     Active Substance: WARFARIN SODIUM
  14. BISACODYL [Concomitant]
     Active Substance: BISACODYL
  15. PROCHLORPERAZINE MALEATE [Concomitant]
     Active Substance: PROCHLORPERAZINE MALEATE
  16. DEPO-PROVERA [Concomitant]
     Active Substance: MEDROXYPROGESTERONE ACETATE
  17. OXYGEN [Concomitant]
     Active Substance: OXYGEN
  18. REMODULIN [Concomitant]
     Active Substance: TREPROSTINIL
  19. ENOXAPARIN SODIUM [Concomitant]
     Active Substance: ENOXAPARIN SODIUM
  20. FUROSEMIDE [Concomitant]
     Active Substance: FUROSEMIDE
  21. POLYETHYLENE GLYCOLS [Concomitant]
     Active Substance: POLYETHYLENE GLYCOLS
  22. LOPERAMIDE [Concomitant]
     Active Substance: LOPERAMIDE

REACTIONS (10)
  - Pregnancy test positive [Unknown]
  - Vaginal haemorrhage [Unknown]
  - Pregnancy [Unknown]
  - Maternal exposure during pregnancy [Unknown]
  - Contraindicated product administered [Unknown]
  - Abortion induced [Unknown]
  - Syncope [Unknown]
  - Anxiety [Unknown]
  - Tremor [Unknown]
  - Anger [Unknown]

NARRATIVE: CASE EVENT DATE: 20231017
